FAERS Safety Report 9444234 (Version 1)
Quarter: 2013Q3

REPORT INFORMATION
  Report Type: Spontaneous
  Country: US (occurrence: None)
  Receive Date: 20130806
  Receipt Date: 20130806
  Transmission Date: 20140515
  Serious: Yes (Hospitalization)
  Sender: FDA-Public Use
  Company Number: None

PATIENT
  Age: 89 Year
  Sex: Female

DRUGS (2)
  1. XARELTO 15MG JANSSEN [Suspect]
     Indication: PULMONARY EMBOLISM
     Route: 048
     Dates: start: 20130705, end: 20130709
  2. ASPIRIN [Concomitant]

REACTIONS (2)
  - Gastrointestinal haemorrhage [None]
  - Anaemia [None]
